FAERS Safety Report 8450607-X (Version None)
Quarter: 2012Q2

REPORT INFORMATION
  Report Type: 
  Country: None (occurrence: None)
  Receive Date: 20120620
  Receipt Date: 20120614
  Transmission Date: 20120825
  Serious: Yes (Other)
  Sender: FDA-Public Use
  Company Number: PHHY2012MX046488

PATIENT
  Sex: Female

DRUGS (7)
  1. ACETYLSALICYLIC ACID SRT [Concomitant]
     Indication: HEADACHE
     Dosage: 150 MG, UNK
  2. ZOLEDRONOC ACID [Suspect]
     Indication: OSTEOPOROSIS
     Dosage: 5 MG/100 ML EACH YEAR
     Route: 042
     Dates: start: 20120525
  3. RISPERIDONE [Concomitant]
     Indication: DEPRESSION
     Dosage: UNK HALF TABLET
     Dates: start: 20100101
  4. LOSARTAN POTASSIUM [Concomitant]
     Indication: HYPERTENSION
     Dosage: 1 DF, QD
     Dates: start: 20080101
  5. TELMISARTAN [Concomitant]
     Dosage: 40 MG, UNK
  6. DONEPEZIL HCL [Concomitant]
     Indication: DEMENTIA ALZHEIMER'S TYPE
     Dosage: 5 MG, UNK
     Dates: start: 20120416
  7. RISPERIDONE [Concomitant]
     Indication: DEMENTIA ALZHEIMER'S TYPE

REACTIONS (5)
  - MUSCLE SPASMS [None]
  - MUCOSAL DRYNESS [None]
  - HYPOKINESIA [None]
  - EYE PAIN [None]
  - GAIT DISTURBANCE [None]
